FAERS Safety Report 14416759 (Version 1)
Quarter: 2018Q1

REPORT INFORMATION
  Report Type: Spontaneous
  Country: US (occurrence: US)
  Receive Date: 20180119
  Receipt Date: 20180119
  Transmission Date: 20180509
  Serious: Yes (Hospitalization)
  Sender: FDA-Public Use
  Company Number: None

PATIENT
  Age: 61 Year
  Sex: Male

DRUGS (11)
  1. HYDROCHLOROTHIAZIDE. [Concomitant]
     Active Substance: HYDROCHLOROTHIAZIDE
  2. ASPIRIN. [Concomitant]
     Active Substance: ASPIRIN
  3. ATORVASTATIN [Concomitant]
     Active Substance: ATORVASTATIN
  4. FLUTICASONE. [Concomitant]
     Active Substance: FLUTICASONE
  5. FERROUS SULFATE. [Concomitant]
     Active Substance: FERROUS SULFATE
  6. METFORMIN [Concomitant]
     Active Substance: METFORMIN HYDROCHLORIDE
  7. VANCOMYCIN [Suspect]
     Active Substance: VANCOMYCIN
     Indication: WOUND INFECTION
     Route: 042
     Dates: start: 20170828
  8. BUDESONIDE. [Concomitant]
     Active Substance: BUDESONIDE
  9. SILDENAFIL. [Concomitant]
     Active Substance: SILDENAFIL
  10. GLIPIZIDE. [Concomitant]
     Active Substance: GLIPIZIDE
  11. LISINOPRIL. [Concomitant]
     Active Substance: LISINOPRIL

REACTIONS (2)
  - Acute kidney injury [None]
  - Drug level increased [None]

NARRATIVE: CASE EVENT DATE: 20170828
